FAERS Safety Report 13475916 (Version 1)
Quarter: 2017Q2

REPORT INFORMATION
  Report Type: Spontaneous
  Country: US (occurrence: US)
  Receive Date: 20170424
  Receipt Date: 20170424
  Transmission Date: 20170830
  Serious: No
  Sender: FDA-Public Use
  Company Number: US-ACTELION-A-US2015-126392

PATIENT
  Age: 52 Year
  Sex: Female
  Weight: 57.6 kg

DRUGS (2)
  1. ADCIRCA [Concomitant]
     Active Substance: TADALAFIL
  2. OPSUMIT [Suspect]
     Active Substance: MACITENTAN
     Indication: PULMONARY HYPERTENSION
     Dosage: 10 MG, QD
     Route: 048
     Dates: start: 20150330

REACTIONS (4)
  - Viral upper respiratory tract infection [Unknown]
  - Drug dose omission [Unknown]
  - Malaise [Unknown]
  - Dysphagia [Unknown]
